FAERS Safety Report 5323074-2 (Version None)
Quarter: 2007Q2

REPORT INFORMATION
  Report Type: 
  Country: None (occurrence: None)
  Receive Date: 20070507
  Receipt Date: 20070427
  Transmission Date: 20071010
  Serious: Yes (Hospitalization)
  Sender: FDA-Public Use
  Company Number: CIP07000812

PATIENT
  Age: 22 Year
  Sex: Male

DRUGS (1)
  1. ASACOL [Suspect]
     Indication: CROHN'S DISEASE
     Dosage: ORAL
     Route: 048
     Dates: start: 20060101

REACTIONS (2)
  - HEAD INJURY [None]
  - SUBDURAL HAEMATOMA [None]
